FAERS Safety Report 4497891-5 (Version None)
Quarter: 2004Q4

REPORT INFORMATION
  Report Type: 
  Country: None (occurrence: None)
  Receive Date: 20041105
  Receipt Date: 20041025
  Transmission Date: 20050328
  Serious: Yes (Hospitalization, Other)
  Sender: FDA-Public Use
  Company Number: 2004083497

PATIENT
  Age: 69 Year
  Sex: Female
  Weight: 87.9978 kg

DRUGS (3)
  1. NEURONTIN [Suspect]
     Indication: BACK PAIN
     Dosage: 200 MG (100 MG, 2 IN 1 D), ORAL
     Route: 048
     Dates: start: 20040701, end: 20040803
  2. OMEPRAZOLE [Concomitant]
  3. FUROSEMIDE [Concomitant]

REACTIONS (9)
  - ATRIAL FIBRILLATION [None]
  - CONDITION AGGRAVATED [None]
  - DIZZINESS [None]
  - DRUG INEFFECTIVE [None]
  - DYSPNOEA [None]
  - HEMIPARESIS [None]
  - INSOMNIA [None]
  - NOCTURNAL DYSPNOEA [None]
  - TRANSIENT ISCHAEMIC ATTACK [None]
